FAERS Safety Report 8023993-2 (Version None)
Quarter: 2011Q4

REPORT INFORMATION
  Report Type: 
  Country: None (occurrence: None)
  Receive Date: 20111230
  Receipt Date: 20111215
  Transmission Date: 20120403
  Serious: Yes (Hospitalization, Other)
  Sender: FDA-Public Use
  Company Number: 2011MA017698

PATIENT
  Age: 45 Year
  Sex: Male

DRUGS (3)
  1. ESCTIALOPRAM [Concomitant]
  2. ZOLPIDEM TARTRATE [Suspect]
     Indication: INSOMNIA
     Dosage: 25 MG; WD
  3. LORAZEPAM [Suspect]
     Indication: ALCOHOL DETOXIFICATION
     Dosage: 8 MG; QD

REACTIONS (7)
  - BLOOD PRESSURE INCREASED [None]
  - DISORIENTATION [None]
  - INCORRECT DOSE ADMINISTERED [None]
  - DELIRIUM [None]
  - INCONTINENCE [None]
  - AGITATION [None]
  - REFUSAL OF TREATMENT BY PATIENT [None]
